FAERS Safety Report 18754260 (Version 2)
Quarter: 2021Q2

REPORT INFORMATION
  Report Type: Report from Study
  Country: FR (occurrence: FR)
  Receive Date: 20210119
  Receipt Date: 20210529
  Transmission Date: 20210717
  Serious: Yes (Hospitalization)
  Sender: FDA-Public Use
  Company Number: FR-JNJFOC-20210125932

PATIENT
  Age: 81 Year
  Sex: Male
  Weight: 104 kg

DRUGS (8)
  1. HYDROKLORTIAZID [Concomitant]
     Indication: CARDIAC FAILURE
     Dosage: 2.5 MG, QD
     Route: 048
  2. AMLODIPINE [Concomitant]
     Active Substance: AMLODIPINE BESYLATE
     Indication: HYPERTENSION
     Dosage: 5 MG, QD
     Route: 048
  3. XARELTO [Suspect]
     Active Substance: RIVAROXABAN
     Indication: ATRIAL FIBRILLATION
     Dosage: 15 MG, QD
     Route: 048
     Dates: start: 2019
  4. FUROSEMIDE. [Concomitant]
     Active Substance: FUROSEMIDE
     Indication: HYPERTENSION
     Dosage: 250 MG, QD
     Route: 048
  5. PRAVASTATINE [PRAVASTATIN] [Concomitant]
     Active Substance: PRAVASTATIN
     Indication: DYSLIPIDAEMIA
     Dosage: 40 MG, QD
     Route: 048
  6. XARELTO [Suspect]
     Active Substance: RIVAROXABAN
     Indication: ATRIAL FIBRILLATION
     Dosage: 15 MG, QD
     Route: 048
     Dates: start: 2019, end: 20210428
  7. RAMIPRIL. [Concomitant]
     Active Substance: RAMIPRIL
     Indication: HYPERTENSION
     Dosage: 2.5 MG, QD
     Route: 048
  8. NEBIVOLOL. [Concomitant]
     Active Substance: NEBIVOLOL
     Indication: HYPERTENSION
     Dosage: 2.5 MG, QD
     Route: 048

REACTIONS (10)
  - Acute pulmonary oedema [Recovered/Resolved]
  - COVID-19 pneumonia [Recovering/Resolving]
  - Iron deficiency anaemia [Recovering/Resolving]
  - Iron deficiency anaemia [Recovering/Resolving]
  - Generalised oedema [Recovered/Resolved]
  - Nephrogenic anaemia [Recovering/Resolving]
  - Cholecystitis [Recovering/Resolving]
  - Nephrogenic anaemia [Recovering/Resolving]
  - Anaemia of chronic disease [Recovering/Resolving]
  - Anaemia of chronic disease [Recovering/Resolving]

NARRATIVE: CASE EVENT DATE: 20200404
